FAERS Safety Report 7600426-9 (Version None)
Quarter: 2011Q2

REPORT INFORMATION
  Report Type: 
  Country: None (occurrence: None)
  Receive Date: 20110629
  Receipt Date: 20110614
  Transmission Date: 20111010
  Serious: Yes (Hospitalization, Other)
  Sender: FDA-Public Use
  Company Number: AUR-APL-2011-03527

PATIENT
  Age: 72 Year
  Sex: Male

DRUGS (6)
  1. FUROSEMIDE [Suspect]
     Indication: RENAL FAILURE CHRONIC
     Dosage: 1 D, ORAL
     Route: 048
     Dates: end: 20100409
  2. LOSARTAN POTASSIUM [Suspect]
     Indication: HYPERTENSION
     Dosage: 1 D, ORAL
     Route: 048
     Dates: start: 20090901, end: 20100409
  3. BISOPROLOL FUMARATE [Suspect]
     Indication: HYPERTENSION
     Dosage: 1 D, ORAL
     Route: 048
  4. CYCLOSPORINE [Suspect]
     Indication: RENAL TRANSPLANT
     Dosage: 1 D, ORAL
     Route: 048
  5. TROMALYT (ACETYLSALICYLIC ACID) [Concomitant]
  6. CARDURAN NEO (DOXAZOSIN MESILATE) [Suspect]
     Indication: HYPERTENSION
     Dosage: 1 D, ORAL
     Route: 048

REACTIONS (4)
  - RENAL FAILURE ACUTE [None]
  - DIARRHOEA [None]
  - PYREXIA [None]
  - DRUG INTERACTION [None]
